FAERS Safety Report 19861466 (Version 1)
Quarter: 2021Q3

REPORT INFORMATION
  Report Type: Spontaneous
  Country: US (occurrence: US)
  Receive Date: 20210921
  Receipt Date: 20210921
  Transmission Date: 20211014
  Serious: Yes (Other)
  Sender: FDA-Public Use
  Company Number: US-TEVA-2021-US-1957235

PATIENT
  Sex: Male

DRUGS (6)
  1. MORPHINE SULFATE. [Suspect]
     Active Substance: MORPHINE SULFATE
     Indication: PRODUCT USED FOR UNKNOWN INDICATION
     Route: 065
     Dates: end: 20210903
  2. UNITUXIN [Suspect]
     Active Substance: DINUTUXIMAB
     Indication: PRODUCT USED FOR UNKNOWN INDICATION
     Dosage: CYCLICAL, (CYCLE 4)
     Route: 041
     Dates: end: 20210903
  3. MORPHINE SULFATE. [Suspect]
     Active Substance: MORPHINE SULFATE
     Route: 065
     Dates: start: 20210903
  4. KETAMINE [Suspect]
     Active Substance: KETAMINE
     Indication: PRODUCT USED FOR UNKNOWN INDICATION
     Route: 065
     Dates: end: 20210903
  5. DILAUDID [Concomitant]
     Active Substance: HYDROMORPHONE HYDROCHLORIDE
     Route: 065
  6. KETAMINE [Suspect]
     Active Substance: KETAMINE
     Route: 065
     Dates: start: 20210903

REACTIONS (5)
  - Hallucination [Unknown]
  - Mydriasis [Unknown]
  - Unintentional medical device removal [Unknown]
  - Aggression [Unknown]
  - Confusional state [Unknown]

NARRATIVE: CASE EVENT DATE: 20210902
